FAERS Safety Report 7832997-1 (Version None)
Quarter: 2011Q4

REPORT INFORMATION
  Report Type: 
  Country: None (occurrence: None)
  Receive Date: 20111024
  Receipt Date: 20111014
  Transmission Date: 20120403
  Serious: Yes (Other)
  Sender: FDA-Public Use
  Company Number: US-JNJFOC-20111008614

PATIENT
  Sex: Female
  Weight: 45.36 kg

DRUGS (9)
  1. FENTANYL-100 [Suspect]
     Indication: ARTHRALGIA
     Route: 062
     Dates: start: 20111007
  2. SEROQUEL [Concomitant]
     Indication: BIPOLAR DISORDER
     Route: 048
     Dates: start: 20060101
  3. PERCOCET [Concomitant]
     Indication: PAIN
     Dosage: 7.5/325
     Route: 048
     Dates: start: 20110801
  4. FENTANYL-100 [Suspect]
     Indication: SCIATICA
     Route: 062
     Dates: start: 20111007
  5. GABAPENTIN [Concomitant]
     Indication: NEURALGIA
     Route: 048
  6. SYNTHROID [Concomitant]
     Indication: THYROID DISORDER
     Route: 048
     Dates: start: 20070101
  7. CLONAZEPAM [Concomitant]
     Indication: ANXIETY
     Route: 048
     Dates: start: 20040101
  8. VITAMIN TAB [Concomitant]
     Route: 048
  9. UNKNOWN MEDICATION [Concomitant]
     Indication: ELEVATED MOOD
     Route: 048
     Dates: start: 20100101

REACTIONS (8)
  - TREMOR [None]
  - DRUG EFFECT INCREASED [None]
  - BIPOLAR DISORDER [None]
  - DISTURBANCE IN ATTENTION [None]
  - AREFLEXIA [None]
  - DRUG INEFFECTIVE [None]
  - HYPERACUSIS [None]
  - PRODUCT QUALITY ISSUE [None]
